FAERS Safety Report 18847141 (Version 9)
Quarter: 2023Q2

REPORT INFORMATION
  Report Type: Spontaneous
  Country: US (occurrence: US)
  Receive Date: 20210204
  Receipt Date: 20230525
  Transmission Date: 20230722
  Serious: No
  Sender: FDA-Public Use
  Company Number: US-PFIZER INC-2020485635

PATIENT
  Age: 51 Year
  Sex: Female
  Weight: 92.99 kg

DRUGS (7)
  1. IBRANCE [Suspect]
     Active Substance: PALBOCICLIB
     Indication: Breast cancer metastatic
     Dosage: 125 MG, ONCE DAILY FOR 21 DAYS ON THEN 7 DAYS OFF
     Route: 048
     Dates: start: 2017
  2. IBRANCE [Suspect]
     Active Substance: PALBOCICLIB
     Dosage: 100 MG, DAILY FOR 21 DAYS ON THEN 7 DAYS OFF
     Route: 048
     Dates: start: 20210430
  3. IBRANCE [Suspect]
     Active Substance: PALBOCICLIB
     Dosage: 125 MG
  4. IBRANCE [Suspect]
     Active Substance: PALBOCICLIB
     Dosage: 100 MG, DAILY FOR 21 DAYS ON THEN 7 DAYS OFF
     Route: 048
  5. IBRANCE [Suspect]
     Active Substance: PALBOCICLIB
     Dosage: 100 MG
  6. LETROZOLE [Concomitant]
     Active Substance: LETROZOLE
     Indication: Neoplasm malignant
     Dosage: 2.5 MG, DAILY
     Route: 048
     Dates: start: 2017
  7. XGEVA [Concomitant]
     Active Substance: DENOSUMAB
     Indication: Bone disorder
     Dosage: UNK (EVERY 3 MONTHS)
     Dates: start: 2017

REACTIONS (19)
  - COVID-19 [Unknown]
  - Malaise [Recovering/Resolving]
  - Skin disorder [Recovering/Resolving]
  - Toothache [Recovering/Resolving]
  - Mastication disorder [Recovering/Resolving]
  - Arthralgia [Recovering/Resolving]
  - Head discomfort [Recovering/Resolving]
  - Hot flush [Recovering/Resolving]
  - Impaired driving ability [Unknown]
  - Malaise [Unknown]
  - Gait disturbance [Unknown]
  - Muscle spasms [Unknown]
  - Nasopharyngitis [Not Recovered/Not Resolved]
  - Illness [Unknown]
  - Productive cough [Not Recovered/Not Resolved]
  - Asthenia [Unknown]
  - Pyrexia [Recovered/Resolved]
  - Product dose omission in error [Unknown]
  - Product prescribing issue [Unknown]

NARRATIVE: CASE EVENT DATE: 20170101
